FAERS Safety Report 11753145 (Version 1)
Quarter: 2015Q4

REPORT INFORMATION
  Report Type: Spontaneous
  Country: US (occurrence: US)
  Receive Date: 20151119
  Receipt Date: 20151119
  Transmission Date: 20160304
  Serious: Yes (Other)
  Sender: FDA-Public Use
  Company Number: US-AMGEN-USASP2015120483

PATIENT
  Age: 76 Year
  Sex: Female

DRUGS (1)
  1. PROLIA [Suspect]
     Active Substance: DENOSUMAB
     Indication: PRODUCT USED FOR UNKNOWN INDICATION
     Dosage: UNK
     Route: 065
     Dates: start: 2014

REACTIONS (19)
  - Arthritis [Unknown]
  - Flatulence [Unknown]
  - Insomnia [Unknown]
  - Erythema [Unknown]
  - Local swelling [Unknown]
  - Ear operation [Not Recovered/Not Resolved]
  - Renal failure [Unknown]
  - Foot deformity [Not Recovered/Not Resolved]
  - Abdominal distension [Unknown]
  - Bone pain [Unknown]
  - Pain in jaw [Unknown]
  - Dysphagia [Unknown]
  - Fracture [Unknown]
  - Cystitis [Unknown]
  - Gait disturbance [Unknown]
  - Mobility decreased [Not Recovered/Not Resolved]
  - Nervousness [Unknown]
  - Impaired healing [Not Recovered/Not Resolved]
  - Pain in extremity [Unknown]

NARRATIVE: CASE EVENT DATE: 201509
